FAERS Safety Report 4701596-2 (Version None)
Quarter: 2005Q2

REPORT INFORMATION
  Report Type: 
  Country: None (occurrence: None)
  Receive Date: 20050627
  Receipt Date: 20050615
  Transmission Date: 20051028
  Serious: Yes (Hospitalization, Other)
  Sender: FDA-Public Use
  Company Number: L05-GER-01072-01

PATIENT
  Age: 38 Year
  Sex: Female

DRUGS (2)
  1. CARBAMAZEPINE [Suspect]
     Indication: INTENTIONAL MISUSE
     Dosage: 8 G ONCE PO
     Route: 048
  2. CARBAMAZEPINE [Suspect]
     Indication: OVERDOSE
     Dosage: 8 G ONCE PO
     Route: 048

REACTIONS (13)
  - BLOOD ALBUMIN DECREASED [None]
  - BLOOD LACTATE DEHYDROGENASE INCREASED [None]
  - COMA [None]
  - DRUG EXPOSURE DURING PREGNANCY [None]
  - DRUG TOXICITY [None]
  - ECLAMPSIA [None]
  - EXTENSOR PLANTAR RESPONSE [None]
  - FOETAL HEART RATE ABNORMAL [None]
  - GRAND MAL CONVULSION [None]
  - INTENTIONAL MISUSE [None]
  - OVERDOSE [None]
  - PREMATURE LABOUR [None]
  - SUICIDE ATTEMPT [None]
